FAERS Safety Report 7563149-0 (Version None)
Quarter: 2011Q2

REPORT INFORMATION
  Report Type: 
  Country: None (occurrence: None)
  Receive Date: 20110622
  Receipt Date: 20110614
  Transmission Date: 20111010
  Serious: Yes (Other)
  Sender: FDA-Public Use
  Company Number: US-KINGPHARMUSA00001-K201100485

PATIENT
  Age: 75 Year
  Sex: Female

DRUGS (2)
  1. ABSORBABLE GELATIN SPONGE [Suspect]
     Indication: OPERATIVE HAEMORRHAGE
     Dosage: UNK
     Route: 018
  2. THROMBIN-JMI [Suspect]
     Dosage: UNK
     Route: 018

REACTIONS (6)
  - VIITH NERVE PARALYSIS [None]
  - INCORRECT ROUTE OF DRUG ADMINISTRATION [None]
  - VITH NERVE PARALYSIS [None]
  - TRANSVERSE SINUS THROMBOSIS [None]
  - DIPLOPIA [None]
  - DIZZINESS [None]
